FAERS Safety Report 4695502-7 (Version None)
Quarter: 2005Q2

REPORT INFORMATION
  Report Type: 
  Country: None (occurrence: None)
  Receive Date: 20050621
  Receipt Date: 20050607
  Transmission Date: 20051028
  Serious: Yes (Other)
  Sender: FDA-Public Use
  Company Number: US-JNJFOC-20050504061

PATIENT
  Age: 13 Year
  Sex: Male

DRUGS (3)
  1. TYLENOL [Suspect]
     Route: 049
  2. TYLENOL [Suspect]
     Indication: PAIN
     Route: 049
  3. UNSPECIFIED INHALER [Concomitant]

REACTIONS (4)
  - APHONIA [None]
  - CHOKING [None]
  - DYSPHAGIA [None]
  - DYSPNOEA [None]
